FAERS Safety Report 8252620-4 (Version None)
Quarter: 2012Q2

REPORT INFORMATION
  Report Type: 
  Country: None (occurrence: None)
  Receive Date: 20120402
  Receipt Date: 20110728
  Transmission Date: 20120825
  Serious: No
  Sender: FDA-Public Use
  Company Number: US-ABBOTT-11P-163-0842250-00

PATIENT
  Sex: Male

DRUGS (1)
  1. ANDROGEL [Suspect]
     Indication: BLOOD TESTOSTERONE DECREASED
     Dosage: 10 PUMPS PER DAY
     Dates: start: 20090101, end: 20110717

REACTIONS (3)
  - MOOD SWINGS [None]
  - ASTHENIA [None]
  - INSOMNIA [None]
